FAERS Safety Report 4390682-5 (Version None)
Quarter: 2004Q2

REPORT INFORMATION
  Report Type: 
  Country: None (occurrence: None)
  Receive Date: 20040630
  Receipt Date: 20040614
  Transmission Date: 20050107
  Serious: Yes (Death, Hospitalization)
  Sender: FDA-Public Use
  Company Number: DSA_70290_2004

PATIENT
  Age: 30 Year
  Sex: Female
  Weight: 71.2147 kg

DRUGS (4)
  1. BRETHINE [Suspect]
     Indication: TOCOLYSIS
     Dosage: 2.5 MG BID PO
     Route: 048
     Dates: start: 20031222
  2. BRETHINE [Suspect]
     Indication: TOCOLYSIS
     Dosage: 2.5 MG BID PO
     Route: 048
     Dates: start: 20031210, end: 20031219
  3. BRETHINE [Suspect]
     Indication: TOCOLYSIS
     Dosage: 0.25 MG TID SC
     Route: 058
     Dates: start: 20031209, end: 20031209
  4. BRETHINE [Suspect]
     Indication: TOCOLYSIS
     Dosage: 2.5 MG QID PO
     Route: 048
     Dates: start: 20031209, end: 20031209

REACTIONS (11)
  - CAESAREAN SECTION [None]
  - CIRCULATORY COLLAPSE [None]
  - COMA [None]
  - DRUG EXPOSURE DURING PREGNANCY [None]
  - ELECTROMECHANICAL DISSOCIATION [None]
  - FEELING ABNORMAL [None]
  - GLUCOSE TOLERANCE INCREASED [None]
  - HYPOKALAEMIA [None]
  - PNEUMONITIS [None]
  - PULMONARY OEDEMA [None]
  - SUDDEN DEATH [None]
